FAERS Safety Report 7964392-9 (Version None)
Quarter: 2011Q4

REPORT INFORMATION
  Report Type: 
  Country: None (occurrence: None)
  Receive Date: 20111208
  Receipt Date: 20111129
  Transmission Date: 20120403
  Serious: Yes (Hospitalization)
  Sender: FDA-Public Use
  Company Number: US-ABBOTT-11P-163-0878216-00

PATIENT

DRUGS (3)
  1. HUMIRA [Suspect]
     Dosage: FOUR INJECTIONS-INITIAL DOSE
  2. HUMIRA [Suspect]
  3. HUMIRA [Suspect]
     Indication: CROHN'S DISEASE
     Dosage: TWO INJECTIONS

REACTIONS (9)
  - OEDEMA PERIPHERAL [None]
  - GASTRIC DILATATION [None]
  - OROPHARYNGEAL BLISTERING [None]
  - PHARYNGEAL OEDEMA [None]
  - DYSPNOEA [None]
  - INJECTION SITE SWELLING [None]
  - MALAISE [None]
  - ABDOMINAL PAIN [None]
  - NECK PAIN [None]
